FAERS Safety Report 23953876 (Version 1)
Quarter: 2024Q2

REPORT INFORMATION
  Report Type: Spontaneous
  Country: US (occurrence: US)
  Receive Date: 20240609
  Receipt Date: 20240609
  Transmission Date: 20240716
  Serious: No
  Sender: FDA-Public Use
  Company Number: US-SA-SAC20240604000461

PATIENT
  Age: 30 Year
  Sex: Female

DRUGS (2)
  1. DUPIXENT [Suspect]
     Active Substance: DUPILUMAB
     Indication: Dermatitis atopic
     Dosage: 300 MG, QOW
     Route: 058
     Dates: start: 20190706
  2. ESCITALOPRAM OXALATE [Suspect]
     Active Substance: ESCITALOPRAM OXALATE
     Indication: Anxiety
     Dosage: UNK
     Dates: start: 202405, end: 202405

REACTIONS (8)
  - Laryngitis [Unknown]
  - Dysphonia [Unknown]
  - Nausea [Unknown]
  - Decreased appetite [Unknown]
  - Anxiety [Unknown]
  - Salivary hypersecretion [Unknown]
  - Bowel movement irregularity [Unknown]
  - Night sweats [Unknown]

NARRATIVE: CASE EVENT DATE: 20240101
